FAERS Safety Report 13442883 (Version 1)
Quarter: 2017Q2

REPORT INFORMATION
  Report Type: Spontaneous
  Country: US (occurrence: US)
  Receive Date: 20170414
  Receipt Date: 20170414
  Transmission Date: 20170830
  Serious: No
  Sender: FDA-Public Use
  Company Number: US-ASTRAZENECA-2017SE38930

PATIENT
  Age: 654 Month
  Sex: Female
  Weight: 61.2 kg

DRUGS (6)
  1. SYMBICORT [Suspect]
     Active Substance: BUDESONIDE\FORMOTEROL FUMARATE DIHYDRATE
     Indication: CHRONIC OBSTRUCTIVE PULMONARY DISEASE
     Dosage: UNKNOWN
     Route: 055
     Dates: start: 201610, end: 20161213
  2. DULERA [Concomitant]
     Active Substance: FORMOTEROL FUMARATE DIHYDRATE\MOMETASONE FUROATE
  3. ADVAIR HFA [Concomitant]
     Active Substance: FLUTICASONE PROPIONATE\SALMETEROL XINAFOATE
  4. SYMBICORT [Suspect]
     Active Substance: BUDESONIDE\FORMOTEROL FUMARATE DIHYDRATE
     Indication: PNEUMOTHORAX
     Dosage: UNKNOWN
     Route: 055
     Dates: start: 201610, end: 20161213
  5. ALBUTEROL. [Concomitant]
     Active Substance: ALBUTEROL
     Dosage: EVERY SIX HOURS
     Route: 055
     Dates: start: 201610, end: 201612
  6. SPIRIVA [Concomitant]
     Active Substance: TIOTROPIUM BROMIDE MONOHYDRATE
     Route: 055
     Dates: start: 201610, end: 201612

REACTIONS (3)
  - Dyspnoea [Not Recovered/Not Resolved]
  - Insurance issue [Unknown]
  - Malaise [Not Recovered/Not Resolved]

NARRATIVE: CASE EVENT DATE: 201701
